FAERS Safety Report 12437250 (Version 1)
Quarter: 2016Q2

REPORT INFORMATION
  Report Type: Spontaneous
  Country: JP (occurrence: JP)
  Receive Date: 20160606
  Receipt Date: 20160606
  Transmission Date: 20160815
  Serious: Yes (Death, Other)
  Sender: FDA-Public Use
  Company Number: JP-SUN PHARMACEUTICAL INDUSTRIES LTD-2016RR-117202

PATIENT
  Sex: Female
  Weight: 45 kg

DRUGS (5)
  1. CHLORPROMAZINE. [Suspect]
     Active Substance: CHLORPROMAZINE
     Indication: MENTAL DISORDER
     Dosage: UNK
     Route: 048
  2. ALPRAZOLAM. [Suspect]
     Active Substance: ALPRAZOLAM
     Indication: MENTAL DISORDER
     Dosage: UNK
     Route: 048
  3. PHENOBARBITAL. [Suspect]
     Active Substance: PHENOBARBITAL
     Indication: MENTAL DISORDER
     Dosage: UNK
     Route: 048
  4. BROMAZEPAM [Suspect]
     Active Substance: BROMAZEPAM
     Indication: MENTAL DISORDER
     Dosage: UNK
     Route: 048
  5. PROMETHAZINE [Suspect]
     Active Substance: PROMETHAZINE\PROMETHAZINE HYDROCHLORIDE
     Indication: MENTAL DISORDER
     Dosage: UNK
     Route: 048

REACTIONS (2)
  - Overdose [Fatal]
  - Toxicity to various agents [Fatal]
